FAERS Safety Report 16875546 (Version 1)
Quarter: 2019Q4

REPORT INFORMATION
  Report Type: Report from Study
  Country: CO (occurrence: CO)
  Receive Date: 20191002
  Receipt Date: 20191002
  Transmission Date: 20200122
  Serious: Yes (Death, Other)
  Sender: FDA-Public Use
  Company Number: CO-ASTRAZENECA-2019SE98387

PATIENT
  Age: 21086 Day
  Sex: Female

DRUGS (2)
  1. IRESSA [Suspect]
     Active Substance: GEFITINIB
     Indication: LUNG NEOPLASM MALIGNANT
     Route: 048
     Dates: start: 20181229, end: 20190704
  2. TAGRISSO [Suspect]
     Active Substance: OSIMERTINIB
     Indication: LUNG NEOPLASM MALIGNANT
     Route: 048
     Dates: start: 20180719, end: 20190625

REACTIONS (3)
  - Death [Fatal]
  - Hepatic cancer [Not Recovered/Not Resolved]
  - Metastases to spine [Unknown]

NARRATIVE: CASE EVENT DATE: 20190625
